FAERS Safety Report 10231636 (Version 1)
Quarter: 2014Q2

REPORT INFORMATION
  Report Type: Spontaneous
  Country: JP (occurrence: JP)
  Receive Date: 20140611
  Receipt Date: 20140611
  Transmission Date: 20141212
  Serious: Yes (Other)
  Sender: FDA-Public Use
  Company Number: PHHY2014JP070602

PATIENT
  Age: 55 Year
  Sex: Male
  Weight: 55 kg

DRUGS (2)
  1. NEORAL [Suspect]
     Indication: PSORIASIS
     Dosage: 250 MG, DAILY
     Route: 048
     Dates: start: 20140403, end: 20140508
  2. NEORAL [Suspect]
     Dosage: 150 MG, DAILY
     Route: 048
     Dates: start: 20140508, end: 20140605

REACTIONS (5)
  - Pharyngeal hypoaesthesia [Recovered/Resolved]
  - Eating disorder [Recovered/Resolved]
  - Hypoaesthesia [Not Recovered/Not Resolved]
  - Immunosuppressant drug level decreased [Unknown]
  - Immunosuppressant drug level increased [Unknown]
